FAERS Safety Report 19882045 (Version 1)
Quarter: 2021Q3

REPORT INFORMATION
  Report Type: Spontaneous
  Country: US (occurrence: US)
  Receive Date: 20210925
  Receipt Date: 20210925
  Transmission Date: 20211014
  Serious: No
  Sender: FDA-Public Use
  Company Number: US-SA-2021SA312880

PATIENT
  Age: 61 Year
  Sex: Male

DRUGS (1)
  1. DUPIXENT [Suspect]
     Active Substance: DUPILUMAB
     Indication: DERMATITIS ATOPIC
     Dosage: 300 MG
     Route: 058
     Dates: start: 202009, end: 2021

REACTIONS (5)
  - Ageusia [Unknown]
  - COVID-19 [Unknown]
  - Pyrexia [Unknown]
  - Pain [Unknown]
  - Anosmia [Unknown]

NARRATIVE: CASE EVENT DATE: 20210828
